FAERS Safety Report 22586852 (Version 3)
Quarter: 2023Q2

REPORT INFORMATION
  Report Type: Spontaneous
  Country: JP (occurrence: JP)
  Receive Date: 20230611
  Receipt Date: 20230616
  Transmission Date: 20230721
  Serious: Yes (Other)
  Sender: FDA-Public Use
  Company Number: JP-SA-2023SA176399

PATIENT
  Age: 50 Year
  Sex: Male

DRUGS (2)
  1. FABRAZYME [Suspect]
     Active Substance: AGALSIDASE BETA
     Indication: Fabry^s disease
     Dosage: 55 MG, QOW
     Route: 041
     Dates: start: 2007
  2. CLOPIDOGREL BISULFATE [Concomitant]
     Active Substance: CLOPIDOGREL BISULFATE
     Indication: Product used for unknown indication
     Dosage: 75 MG
     Route: 065
     Dates: start: 202303

REACTIONS (2)
  - Vascular dementia [Recovered/Resolved]
  - Cerebral ischaemia [Unknown]

NARRATIVE: CASE EVENT DATE: 20230501
